FAERS Safety Report 25334739 (Version 4)
Quarter: 2025Q3

REPORT INFORMATION
  Report Type: Report from Study
  Country: CN (occurrence: CN)
  Receive Date: 20250520
  Receipt Date: 20250901
  Transmission Date: 20251020
  Serious: Yes (Other)
  Sender: TAKEDA
  Company Number: CN-TAKEDA-2024TUS078820

PATIENT
  Age: 55 Year
  Sex: Male
  Weight: 72 kg

DRUGS (14)
  1. IXAZOMIB [Suspect]
     Active Substance: IXAZOMIB
     Indication: Plasma cell myeloma
  2. DEXAMETHASONE [Suspect]
     Active Substance: DEXAMETHASONE
     Indication: Plasma cell myeloma
  3. LENALIDOMIDE [Suspect]
     Active Substance: LENALIDOMIDE
     Indication: Plasma cell myeloma
  4. CALCIUM CARBONATE\ERGOCALCIFEROL\RETINOL [Concomitant]
     Active Substance: CALCIUM CARBONATE\ERGOCALCIFEROL\RETINOL
     Indication: Osteoporosis prophylaxis
     Dosage: 0.25 MICROGRAM, QD
     Dates: start: 202310
  5. CALCIUM CARBONATE [Concomitant]
     Active Substance: CALCIUM CARBONATE
     Indication: Osteoporosis prophylaxis
     Dosage: 600 MILLIGRAM, QD
     Dates: start: 202310
  6. BICYCLOL [Concomitant]
     Active Substance: BICYCLOL
     Indication: Prophylaxis
  7. FAMCICLOVIR [Concomitant]
     Active Substance: FAMCICLOVIR
     Indication: Herpes virus infection
     Dosage: 0.25 GRAM, QD
     Dates: start: 202310
  8. ENTECAVIR [Concomitant]
     Active Substance: ENTECAVIR
     Indication: Hepatitis B virus test
     Dosage: 0.5 MILLIGRAM, QD
     Dates: start: 20231221
  9. LANSOPRAZOLE [Concomitant]
     Active Substance: LANSOPRAZOLE
     Indication: Prophylaxis
  10. GRANULOCYTE COLONY-STIMULATING FACTOR NOS [Concomitant]
     Active Substance: GRANULOCYTE COLONY-STIMULATING FACTOR NOS
     Indication: Haematopoietic stem cell mobilisation
     Dosage: 150 MICROGRAM, QD
     Dates: start: 20240119
  11. IBANDRONATE SODIUM [Concomitant]
     Active Substance: IBANDRONATE SODIUM
     Indication: Prophylaxis
     Dates: start: 20240701, end: 20240701
  12. LEVOFLOXACIN [Concomitant]
     Active Substance: LEVOFLOXACIN
     Indication: Prophylaxis
     Dosage: 0.5 GRAM, QD
     Dates: start: 20240627, end: 20240710
  13. FLUCONAZOLE [Concomitant]
     Active Substance: FLUCONAZOLE
     Indication: Prophylaxis
     Dosage: 200 MILLIGRAM, QD
     Dates: start: 20240627, end: 20240710
  14. SULFAMETHOXAZOLE [Concomitant]
     Active Substance: SULFAMETHOXAZOLE
     Indication: Prophylaxis
     Dosage: UNK UNK, BID
     Dates: start: 20240627, end: 20240723

REACTIONS (6)
  - Myelosuppression [Not Recovered/Not Resolved]
  - Complications of bone marrow transplant [Not Recovered/Not Resolved]
  - Rhinitis [Recovered/Resolved]
  - Off label use [Unknown]
  - Conjunctivitis [Recovered/Resolved]
  - Pyrexia [Recovered/Resolved]

NARRATIVE: CASE EVENT DATE: 20240126
